FAERS Safety Report 5070002-3 (Version None)
Quarter: 2006Q3

REPORT INFORMATION
  Report Type: 
  Country: None (occurrence: None)
  Receive Date: 20060731
  Receipt Date: 20060719
  Transmission Date: 20061208
  Serious: Yes (Hospitalization)
  Sender: FDA-Public Use
  Company Number: SP-2006-003118

PATIENT
  Age: 75 Year
  Sex: Female

DRUGS (3)
  1. VOTUM [Suspect]
     Indication: HYPERTENSION
     Dosage: 40 MG QD PO
     Route: 048
     Dates: end: 20041001
  2. QUERTO [Suspect]
     Indication: HYPERTENSION
     Dosage: 12.5 MG DAILY PO
     Route: 048
     Dates: end: 20041001
  3. ASPIRIN [Concomitant]

REACTIONS (5)
  - AUTOIMMUNE HEPATITIS [None]
  - CHOLANGITIS SCLEROSING [None]
  - CHOLECYSTITIS [None]
  - HEPATITIS [None]
  - LIVER DISORDER [None]
